FAERS Safety Report 5932120-4 (Version None)
Quarter: 2008Q4

REPORT INFORMATION
  Report Type: 
  Country: None (occurrence: None)
  Receive Date: 20081027
  Receipt Date: 20081027
  Transmission Date: 20090506
  Serious: Yes (Death)
  Sender: FDA-Public Use
  Company Number: None

PATIENT
  Age: 60 Year
  Sex: Male
  Weight: 97.5234 kg

DRUGS (1)
  1. HEPARIN [Suspect]

REACTIONS (2)
  - MULTI-ORGAN DISORDER [None]
  - POST PROCEDURAL COMPLICATION [None]
